FAERS Safety Report 5237026-4 (Version None)
Quarter: 2007Q1

REPORT INFORMATION
  Report Type: 
  Country: None (occurrence: None)
  Receive Date: 20061208
  Receipt Date: 20050328
  Transmission Date: 20070707
  Serious: Yes (Other)
  Sender: FDA-Public Use
  Company Number: 2005UW02836

PATIENT
  Age: 61 Year
  Sex: Female
  Weight: 76.2043 kg

DRUGS (6)
  1. CRESTOR [Suspect]
     Indication: HYPERCHOLESTEROLAEMIA
     Dosage: 10 MG PO
     Route: 048
     Dates: start: 20050101
  2. SULAR [Concomitant]
  3. LORTAB [Concomitant]
  4. STEROID [Concomitant]
  5. BIPOLAR MEDICATION [Concomitant]
  6. SOMA [Concomitant]

REACTIONS (4)
  - DEPRESSION [None]
  - HEART RATE INCREASED [None]
  - HYPOAESTHESIA ORAL [None]
  - PARAESTHESIA [None]
